FAERS Safety Report 6663812-X (Version None)
Quarter: 2010Q2

REPORT INFORMATION
  Report Type: 
  Country: None (occurrence: None)
  Receive Date: 20100401
  Receipt Date: 20100325
  Transmission Date: 20101027
  Serious: Yes (Other)
  Sender: FDA-Public Use
  Company Number: AU-WYE-G04246409

PATIENT
  Age: 53 Year
  Sex: Male

DRUGS (3)
  1. EFFEXOR XR [Suspect]
     Indication: DEPRESSION
     Dosage: 225MG DAILY
  2. MARIJUANA [Concomitant]
  3. ALCOHOL [Concomitant]

REACTIONS (16)
  - AGGRESSION [None]
  - ALCOHOL POISONING [None]
  - ALCOHOL USE [None]
  - BIPOLAR DISORDER [None]
  - CONDITION AGGRAVATED [None]
  - CONFUSIONAL STATE [None]
  - DECREASED INTEREST [None]
  - DRUG ABUSE [None]
  - ECONOMIC PROBLEM [None]
  - EMOTIONAL DISORDER [None]
  - HOSTILITY [None]
  - PARAESTHESIA [None]
  - PERSONALITY CHANGE [None]
  - SUICIDAL IDEATION [None]
  - UNEVALUABLE EVENT [None]
  - VERBAL ABUSE [None]
